FAERS Safety Report 19449162 (Version 1)
Quarter: 2021Q2

REPORT INFORMATION
  Report Type: Report from Study
  Country: HR (occurrence: HR)
  Receive Date: 20210622
  Receipt Date: 20210622
  Transmission Date: 20210717
  Serious: Yes (Hospitalization, Other)
  Sender: FDA-Public Use
  Company Number: NVSC2020HR122544

PATIENT
  Age: 33 Year
  Sex: Female
  Weight: 50 kg

DRUGS (3)
  1. LIORESAL [Concomitant]
     Active Substance: BACLOFEN
     Indication: MULTIPLE SCLEROSIS
     Dosage: 2X25 MG CONTINOUS FROM FIVE YEARS
     Route: 065
  2. MAYZENT [Suspect]
     Active Substance: SIPONIMOD
     Indication: SECONDARY PROGRESSIVE MULTIPLE SCLEROSIS
     Dosage: 2 MG
     Route: 048
     Dates: start: 20191209, end: 20200501
  3. EMSELEX [Concomitant]
     Active Substance: DARIFENACIN HYDROBROMIDE
     Indication: MULTIPLE SCLEROSIS
     Dosage: 7.5 MG, FOR YEARS
     Route: 065
     Dates: end: 202004

REACTIONS (9)
  - Burning sensation [Recovered/Resolved]
  - Paresis [Unknown]
  - Ataxia [Unknown]
  - Micturition urgency [Unknown]
  - Oral herpes [Recovered/Resolved]
  - Urinary tract infection [Recovered/Resolved]
  - Lymphopenia [Recovered/Resolved]
  - Gait disturbance [Unknown]
  - Muscle spasticity [Unknown]

NARRATIVE: CASE EVENT DATE: 202003
